FAERS Safety Report 18658096 (Version 2)
Quarter: 2022Q2

REPORT INFORMATION
  Report Type: Spontaneous
  Country: AR (occurrence: AR)
  Receive Date: 20201224
  Receipt Date: 20220627
  Transmission Date: 20220721
  Serious: Yes (Death)
  Sender: FDA-Public Use
  Company Number: AR-GLAXOSMITHKLINE-AR2020AMR098841

PATIENT

DRUGS (4)
  1. BENLYSTA [Suspect]
     Active Substance: BELIMUMAB
     Indication: Systemic lupus erythematosus
     Dosage: UNK
     Dates: start: 20190401
  2. DELTASONE [Concomitant]
     Active Substance: PREDNISONE
     Indication: Product used for unknown indication
     Dosage: UNK
  3. BISOPROLOL FUMARATE [Concomitant]
     Active Substance: BISOPROLOL FUMARATE
     Indication: Product used for unknown indication
     Dosage: UNK
  4. THYROID [Concomitant]
     Active Substance: LEVOTHYROXINE\LIOTHYRONINE
     Indication: Product used for unknown indication
     Dosage: UNK

REACTIONS (20)
  - COVID-19 [Fatal]
  - Pain in extremity [Unknown]
  - Rash macular [Unknown]
  - Angiopathy [Unknown]
  - Somnolence [Unknown]
  - Arterial disorder [Unknown]
  - Pain [Not Recovered/Not Resolved]
  - Anosmia [Not Recovered/Not Resolved]
  - Ageusia [Recovered/Resolved]
  - Blood pressure decreased [Unknown]
  - Dry throat [Unknown]
  - Retching [Unknown]
  - Mobility decreased [Unknown]
  - Dry mouth [Unknown]
  - Asthenia [Unknown]
  - Dysuria [Unknown]
  - Urinary tract infection [Unknown]
  - Depressed mood [Unknown]
  - Anxiety [Unknown]
  - Crying [Unknown]
